FAERS Safety Report 8251936-5 (Version None)
Quarter: 2012Q2

REPORT INFORMATION
  Report Type: 
  Country: None (occurrence: None)
  Receive Date: 20120402
  Receipt Date: 20120319
  Transmission Date: 20120825
  Serious: Yes (Hospitalization, Other)
  Sender: FDA-Public Use
  Company Number: ES-JHP PHARMACEUTICALS, LLC-JHP201200145

PATIENT
  Age: 28 Year
  Sex: Female

DRUGS (17)
  1. KETALAR [Suspect]
     Indication: PAIN
     Dosage: 250 MG IN 100 CC OVER 24 HOURS
     Route: 058
     Dates: start: 20100101, end: 20100101
  2. DALTEPARIN SODIUM [Concomitant]
     Route: 058
  3. GABAPENTIN [Concomitant]
     Dosage: 900 MG, TID
  4. SENNOSIDE [Concomitant]
     Dosage: 10 DROPS AT BREAKFAST AND DINNER
  5. HALOPERIDOL [Concomitant]
     Dosage: 1 MG, TID
  6. ACETAMINOPHEN [Concomitant]
     Dosage: 1 G, TID
  7. DIAZEPAM [Concomitant]
     Dosage: 5 MG, QHS
  8. BACLOFEN [Concomitant]
     Dosage: 10 MG, TID
  9. PANTOPRAZOLE [Concomitant]
     Dosage: 40 MG, QD
  10. SPIRONOLACTONE [Concomitant]
     Dosage: 100 MG, QD
  11. METHYLNALTREXONE [Concomitant]
     Indication: CONSTIPATION
  12. METHADONE HCL [Concomitant]
     Dosage: 20 MG, TID
     Route: 048
  13. VENLAFAXINE [Concomitant]
     Dosage: 75 MG, BID
  14. DEXAMETHASONE [Concomitant]
     Dosage: 4 MG, QD
  15. KETOROLAC TROMETHAMINE [Concomitant]
     Dosage: 10 MG, TID
  16. MAGNESIUM HYDROXIDE TAB [Concomitant]
     Dosage: 15 ML, QD
  17. FUROSEMIDE [Concomitant]
     Dosage: 40 MG, QD

REACTIONS (6)
  - DYSPNOEA [None]
  - HALLUCINATION, VISUAL [None]
  - SOMNOLENCE [None]
  - NAUSEA [None]
  - OFF LABEL USE [None]
  - DRUG INEFFECTIVE FOR UNAPPROVED INDICATION [None]
